FAERS Safety Report 10388213 (Version 1)
Quarter: 2014Q3

REPORT INFORMATION
  Report Type: Spontaneous
  Country: GB (occurrence: GB)
  Receive Date: 20140815
  Receipt Date: 20140815
  Transmission Date: 20150326
  Serious: Yes (Disabling)
  Sender: FDA-Public Use
  Company Number: GB-GLAXOSMITHKLINE-B1022697A

PATIENT
  Age: 49 Year
  Sex: Female
  Weight: 73.4 kg

DRUGS (3)
  1. SERETIDE [Suspect]
     Active Substance: FLUTICASONE FUROATE\SALMETEROL XINAFOATE
     Indication: ASTHMA
     Route: 055
     Dates: start: 20080510, end: 20140412
  2. IRON [Concomitant]
     Active Substance: IRON
     Dosage: 10MCG PER DAY
  3. THYROXINE [Concomitant]
     Active Substance: LEVOTHYROXINE

REACTIONS (17)
  - Hormone level abnormal [Recovering/Resolving]
  - Adnexa uteri pain [Recovered/Resolved]
  - Breast swelling [Recovered/Resolved]
  - Abnormal weight gain [Recovering/Resolving]
  - Joint swelling [Not Recovered/Not Resolved]
  - Fatigue [Recovered/Resolved]
  - Headache [Recovering/Resolving]
  - Abdominal distension [Recovered/Resolved]
  - Hypertension [Not Recovered/Not Resolved]
  - Swelling face [Recovering/Resolving]
  - Anxiety [Recovering/Resolving]
  - Bone density decreased [Recovering/Resolving]
  - Haemorrhage [Recovered/Resolved]
  - Anaemia [Recovering/Resolving]
  - Hypovitaminosis [Recovering/Resolving]
  - Breast pain [Recovering/Resolving]
  - Erythema [Recovering/Resolving]

NARRATIVE: CASE EVENT DATE: 200809
